FAERS Safety Report 19772271 (Version 2)
Quarter: 2021Q3

REPORT INFORMATION
  Report Type: Spontaneous
  Country: US (occurrence: US)
  Receive Date: 20210831
  Receipt Date: 20210831
  Transmission Date: 20211014
  Serious: Yes (Other)
  Sender: FDA-Public Use
  Company Number: US-PURDUE-USA-2020-0282757

PATIENT
  Sex: Male

DRUGS (1)
  1. TRAMADOL CR TABLETS (RHODES 21?745) [Suspect]
     Active Substance: TRAMADOL
     Indication: PRODUCT USED FOR UNKNOWN INDICATION
     Dosage: UNKNOWN
     Route: 048

REACTIONS (9)
  - Drug dependence [Unknown]
  - Memory impairment [Unknown]
  - Brain hypoxia [Unknown]
  - Developmental delay [Unknown]
  - Emotional distress [Unknown]
  - Needle track marks [Unknown]
  - Learning disability [Unknown]
  - Overdose [Unknown]
  - Pain [Unknown]
